FAERS Safety Report 7216271-2 (Version None)
Quarter: 2011Q1

REPORT INFORMATION
  Report Type: 
  Country: None (occurrence: None)
  Receive Date: 20110107
  Receipt Date: 20101217
  Transmission Date: 20110831
  Serious: No
  Sender: FDA-Public Use
  Company Number: US-B.I. PHARMACEUTICALS,INC./RIDGEFIELD-2010-BP-14829BP

PATIENT
  Sex: Female

DRUGS (7)
  1. PLAQUENIL [Concomitant]
     Indication: ARTHRALGIA
     Dosage: 300 MG
     Route: 048
     Dates: start: 20020101
  2. LEVOTHROID [Concomitant]
     Indication: THYROID DISORDER
     Dosage: 25 MCG
     Route: 048
     Dates: start: 20020101
  3. DIGOXIN [Concomitant]
     Indication: CARDIAC DISORDER
     Dosage: 0.125 MG
     Route: 048
     Dates: start: 20101001
  4. PRADAXA [Suspect]
     Indication: ATRIAL FIBRILLATION
     Dosage: 300 MG
     Route: 048
     Dates: start: 20101214, end: 20101218
  5. NEURONTIN [Concomitant]
     Indication: NEUROPATHY PERIPHERAL
     Dosage: 500 MG
     Route: 048
     Dates: start: 20050101
  6. NEXIUM [Concomitant]
     Indication: GASTROOESOPHAGEAL REFLUX DISEASE
     Dosage: 20 MG
     Route: 048
     Dates: start: 20071101
  7. AMLODIPINE [Concomitant]
     Indication: HYPERTENSION
     Dosage: 2.5 MG
     Route: 048
     Dates: start: 20070101

REACTIONS (5)
  - OEDEMA PERIPHERAL [None]
  - GASTROINTESTINAL DISORDER [None]
  - ERYTHEMA [None]
  - ABDOMINAL PAIN UPPER [None]
  - DIARRHOEA [None]
